FAERS Safety Report 6805666-4 (Version None)
Quarter: 2010Q2

REPORT INFORMATION
  Report Type: 
  Country: None (occurrence: None)
  Receive Date: 20100628
  Receipt Date: 20071228
  Transmission Date: 20101027
  Serious: No
  Sender: FDA-Public Use
  Company Number: US-PFIZER INC-2007089450

PATIENT
  Age: 19 Year
  Sex: Male

DRUGS (7)
  1. GEODON [Suspect]
     Route: 048
     Dates: start: 20070101
  2. ADDERALL XR 10 [Concomitant]
  3. DEPAKOTE [Concomitant]
  4. LEXAPRO [Concomitant]
  5. ALPRAZOLAM [Concomitant]
  6. DEXMETHYLPHENIDATE HYDROCHLORIDE [Concomitant]
  7. DIAZEPAM [Concomitant]

REACTIONS (1)
  - MYDRIASIS [None]
